FAERS Safety Report 15943081 (Version 3)
Quarter: 2020Q1

REPORT INFORMATION
  Report Type: Spontaneous
  Country: US (occurrence: US)
  Receive Date: 20190210
  Receipt Date: 20200311
  Transmission Date: 20200409
  Serious: Yes (Other)
  Sender: FDA-Public Use
  Company Number: US-ASTRAZENECA-2019SE09556

PATIENT
  Age: 19465 Day
  Sex: Female
  Weight: 91.6 kg

DRUGS (21)
  1. NEXIUM [Suspect]
     Active Substance: ESOMEPRAZOLE MAGNESIUM
     Route: 048
     Dates: start: 20151013
  2. XANAX [Concomitant]
     Active Substance: ALPRAZOLAM
  3. NEXIUM [Suspect]
     Active Substance: ESOMEPRAZOLE MAGNESIUM
     Dosage: FOR MULTIPLE AND VARIOUS YEARS.
     Route: 048
  4. METFORMIN [Concomitant]
     Active Substance: METFORMIN HYDROCHLORIDE
  5. ACETAMINOPHEN HYDROCODON [Concomitant]
  6. POTASSIUM CHLORIDE. [Concomitant]
     Active Substance: POTASSIUM CHLORIDE
  7. LINZESS [Concomitant]
     Active Substance: LINACLOTIDE
  8. QUINAPRIL. [Concomitant]
     Active Substance: QUINAPRIL
  9. PROTONIX [Suspect]
     Active Substance: PANTOPRAZOLE SODIUM
     Dosage: FOR MULTIPLE AND VARIOUS YEARS.
     Route: 048
  10. MELOXICAM. [Concomitant]
     Active Substance: MELOXICAM
  11. CARVEDILOL. [Concomitant]
     Active Substance: CARVEDILOL
  12. NITROGLYCERIN. [Concomitant]
     Active Substance: NITROGLYCERIN
  13. HUMALOG [Concomitant]
     Active Substance: INSULIN LISPRO
  14. AMOXICILLIN. [Concomitant]
     Active Substance: AMOXICILLIN
  15. PROTONIX [Suspect]
     Active Substance: PANTOPRAZOLE SODIUM
     Route: 048
     Dates: start: 20061026
  16. LEVEMIR [Concomitant]
     Active Substance: INSULIN DETEMIR
  17. BUMEX [Concomitant]
     Active Substance: BUMETANIDE
  18. COLCHICINE. [Concomitant]
     Active Substance: COLCHICINE
  19. DIGOXIN. [Concomitant]
     Active Substance: DIGOXIN
  20. FUROSEMIDE. [Concomitant]
     Active Substance: FUROSEMIDE
  21. ASPIRIN. [Concomitant]
     Active Substance: ASPIRIN

REACTIONS (6)
  - Chronic kidney disease [Unknown]
  - Acute kidney injury [Unknown]
  - Rebound acid hypersecretion [Unknown]
  - Renal injury [Unknown]
  - Renal failure [Unknown]
  - Hyperparathyroidism secondary [Unknown]

NARRATIVE: CASE EVENT DATE: 20150521
